FAERS Safety Report 9434292 (Version 1)
Quarter: 2013Q3

REPORT INFORMATION
  Report Type: Spontaneous
  Country: US (occurrence: None)
  Receive Date: 20130731
  Receipt Date: 20130731
  Transmission Date: 20140515
  Serious: No
  Sender: FDA-Public Use
  Company Number: None

PATIENT
  Age: 47 Year
  Sex: Female

DRUGS (7)
  1. BACTRIM [Suspect]
     Dates: start: 20101120, end: 20101130
  2. CEFALOZIN [Suspect]
     Dates: start: 20101118, end: 20101118
  3. LANTUS [Concomitant]
  4. METFORMIN [Concomitant]
  5. PREVACID [Concomitant]
  6. OXYCODONE [Concomitant]
  7. LISINOPRIL [Concomitant]

REACTIONS (8)
  - Drug-induced liver injury [None]
  - Jaundice [None]
  - Decreased appetite [None]
  - Anosmia [None]
  - Ageusia [None]
  - Aspartate aminotransferase increased [None]
  - Alanine aminotransferase increased [None]
  - Blood alkaline phosphatase increased [None]
